FAERS Safety Report 16371967 (Version 1)
Quarter: 2019Q2

REPORT INFORMATION
  Report Type: Spontaneous
  Country: US (occurrence: US)
  Receive Date: 20190424
  Receipt Date: 20190424
  Transmission Date: 20190711
  Serious: No
  Sender: FDA-Public Use
  Company Number: None

PATIENT
  Age: 60 Year
  Sex: Male

DRUGS (2)
  1. KALYDECO [Suspect]
     Active Substance: IVACAFTOR
     Indication: SECRETION DISCHARGE
     Dosage: ?          OTHER FREQUENCY:OTHER;?
     Route: 048
     Dates: start: 20181016
  2. KALYDECO [Suspect]
     Active Substance: IVACAFTOR
     Indication: LUNG TRANSPLANT
     Dosage: ?          OTHER FREQUENCY:OTHER;?
     Route: 048
     Dates: start: 20181016

REACTIONS (2)
  - Drug interaction [None]
  - Off label use [None]

NARRATIVE: CASE EVENT DATE: 20190424
